FAERS Safety Report 12728349 (Version 1)
Quarter: 2016Q3

REPORT INFORMATION
  Report Type: Spontaneous
  Country: US (occurrence: US)
  Receive Date: 20160909
  Receipt Date: 20160909
  Transmission Date: 20161109
  Serious: Yes (Death, Other)
  Sender: FDA-Public Use
  Company Number: US-CELGENEUS-USA-2016091207

PATIENT

DRUGS (1)
  1. ABRAXANE [Suspect]
     Active Substance: PACLITAXEL
     Indication: PLASMA CELL MYELOMA
     Route: 041

REACTIONS (3)
  - Plasma cell myeloma [Fatal]
  - Neutropenia [Unknown]
  - Sepsis [Fatal]
